FAERS Safety Report 7736076-3 (Version None)
Quarter: 2011Q3

REPORT INFORMATION
  Report Type: 
  Country: None (occurrence: None)
  Receive Date: 20110902
  Receipt Date: 20110822
  Transmission Date: 20111222
  Serious: Yes (Death)
  Sender: FDA-Public Use
  Company Number: 1019892

PATIENT
  Age: 68 Year
  Sex: Male

DRUGS (4)
  1. (VASOPRESSIN) [Suspect]
     Indication: PRODUCT USED FOR UNKNOWN INDICATION
  2. LEVOPHED [Suspect]
     Indication: PRODUCT USED FOR UNKNOWN INDICATION
  3. PHENYLEPHRINE HCL [Suspect]
     Indication: PRODUCT USED FOR UNKNOWN INDICATION
  4. XIGRIS [Suspect]
     Indication: PRODUCT USED FOR UNKNOWN INDICATION

REACTIONS (1)
  - HAEMORRHAGE [None]
